FAERS Safety Report 4980268-3 (Version None)
Quarter: 2006Q2

REPORT INFORMATION
  Report Type: 
  Country: None (occurrence: None)
  Receive Date: 20060418
  Receipt Date: 20060403
  Transmission Date: 20061013
  Serious: Yes (Death)
  Sender: FDA-Public Use
  Company Number: 2006-BP-03657RO

PATIENT
  Age: 27 Year
  Sex: Male

DRUGS (3)
  1. METHADONE (METHADONE) [Suspect]
  2. UNSPECIFIED WHITE POWDER [Suspect]
  3. VENLAFAXINE HCL [Concomitant]

REACTIONS (2)
  - DIABETIC KETOACIDOSIS [None]
  - DRUG TOXICITY [None]
